FAERS Safety Report 8238238-8 (Version None)
Quarter: 2012Q1

REPORT INFORMATION
  Report Type: 
  Country: None (occurrence: None)
  Receive Date: 20120327
  Receipt Date: 20120321
  Transmission Date: 20120608
  Serious: Yes (Other)
  Sender: FDA-Public Use
  Company Number: PHEH2012US006560

PATIENT
  Sex: Female

DRUGS (5)
  1. ESTRADIOL [Concomitant]
     Dosage: UNK UKN, 4 TO 5 DAYS A WEEK
  2. MEDROXYPROGESTERONE ACETATE [Concomitant]
     Dosage: UNK UKN, UNK
  3. METFORMIN HCL [Concomitant]
     Dosage: 1000 UKN, BID
  4. DIOVAN [Suspect]
     Dosage: 320 MG, QD
  5. ATENOLOL [Concomitant]
     Dosage: 50 MG, QD

REACTIONS (1)
  - TYPE 2 DIABETES MELLITUS [None]
